FAERS Safety Report 15167398 (Version 1)
Quarter: 2018Q3

REPORT INFORMATION
  Report Type: Spontaneous
  Country: US (occurrence: US)
  Receive Date: 20180621
  Receipt Date: 20180621
  Transmission Date: 20181010
  Serious: Yes (Other)
  Sender: FDA-Public Use
  Company Number: None

PATIENT
  Age: 28 Year
  Sex: Female
  Weight: 56.25 kg

DRUGS (3)
  1. FLUTICASONE PROPIONATE NASAL SPRAY USP [Suspect]
     Active Substance: FLUTICASONE PROPIONATE
     Indication: NASAL DRYNESS
     Dosage: ?          OTHER STRENGTH:120 METERED SPRAYS;?
     Route: 045
  2. VITAMINS D3 [Concomitant]
  3. MULTIVITAMIN [Concomitant]
     Active Substance: VITAMINS

REACTIONS (4)
  - Dyspnoea [None]
  - Nasal mucosal erosion [None]
  - Epistaxis [None]
  - Nasal injury [None]

NARRATIVE: CASE EVENT DATE: 20180310
